FAERS Safety Report 21818997 (Version 9)
Quarter: 2024Q3

REPORT INFORMATION
  Report Type: Report from Study
  Country: CA (occurrence: CA)
  Receive Date: 20230104
  Receipt Date: 20240923
  Transmission Date: 20241016
  Serious: Yes (Other)
  Sender: TAKEDA
  Company Number: CA-TAKEDA-2023TUS000626

PATIENT
  Age: 30 Year
  Sex: Female

DRUGS (13)
  1. VEDOLIZUMAB [Suspect]
     Active Substance: VEDOLIZUMAB
     Indication: Colitis ulcerative
     Dosage: 300 MILLIGRAM
     Route: 042
     Dates: start: 20220816
  2. VEDOLIZUMAB [Suspect]
     Active Substance: VEDOLIZUMAB
     Dosage: 300 MILLIGRAM, Q6WEEKS
     Route: 042
     Dates: start: 20230203
  3. VEDOLIZUMAB [Suspect]
     Active Substance: VEDOLIZUMAB
     Dosage: 300 MILLIGRAM, Q6WEEKS
     Route: 042
  4. VEDOLIZUMAB [Suspect]
     Active Substance: VEDOLIZUMAB
     Dosage: 300 MILLIGRAM, Q6WEEKS
     Route: 042
  5. VEDOLIZUMAB [Suspect]
     Active Substance: VEDOLIZUMAB
     Dosage: 300 MILLIGRAM, Q4WEEKS
     Route: 042
     Dates: start: 20240220
  6. VEDOLIZUMAB [Suspect]
     Active Substance: VEDOLIZUMAB
     Dosage: 300 MILLIGRAM, Q4WEEKS
     Route: 042
     Dates: end: 20240903
  7. VEDOLIZUMAB [Suspect]
     Active Substance: VEDOLIZUMAB
     Indication: Colitis ulcerative
     Dosage: 108 MILLIGRAM, Q2WEEKS
     Route: 058
     Dates: start: 20221122
  8. VITAMIN D [Concomitant]
     Active Substance: VITAMIN D NOS
     Dosage: UNK
  9. IRON [Concomitant]
     Active Substance: IRON
     Indication: Supplementation therapy
     Dosage: UNK
  10. VITAMIN B12 [Concomitant]
     Active Substance: CYANOCOBALAMIN
     Dosage: UNK
  11. PENTASA [Concomitant]
     Active Substance: MESALAMINE
     Dosage: UNK
  12. PREDNISONE [Concomitant]
     Active Substance: PREDNISONE
     Dosage: UNK
  13. PREDNISONE [Concomitant]
     Active Substance: PREDNISONE
     Dosage: 40 MILLIGRAM, QD
     Dates: start: 20240216

REACTIONS (13)
  - Colitis ulcerative [Not Recovered/Not Resolved]
  - Haematochezia [Not Recovered/Not Resolved]
  - Frequent bowel movements [Not Recovered/Not Resolved]
  - Injection site bruising [Unknown]
  - Synovial cyst [Unknown]
  - Meniscus injury [Unknown]
  - Therapeutic reaction time decreased [Unknown]
  - Defaecation urgency [Not Recovered/Not Resolved]
  - Mucous stools [Not Recovered/Not Resolved]
  - Off label use [Unknown]
  - Drug ineffective [Unknown]
  - Nasopharyngitis [Unknown]
  - Sinusitis [Not Recovered/Not Resolved]

NARRATIVE: CASE EVENT DATE: 20230203
